FAERS Safety Report 8257206-3 (Version None)
Quarter: 2012Q2

REPORT INFORMATION
  Report Type: 
  Country: None (occurrence: None)
  Receive Date: 20120403
  Receipt Date: 20120327
  Transmission Date: 20120825
  Serious: Yes (Hospitalization)
  Sender: FDA-Public Use
  Company Number: US-JNJFOC-20120314008

PATIENT
  Sex: Female
  Weight: 48.54 kg

DRUGS (5)
  1. FENTANYL-100 [Suspect]
     Indication: BACK PAIN
     Dosage: TWO 12.5 UG/HR EVERY 3 DAYS
     Route: 062
     Dates: start: 20120309, end: 20120313
  2. OXYCODONE HCL [Concomitant]
     Indication: BACK PAIN
     Route: 048
     Dates: start: 20120308
  3. VALIUM [Concomitant]
     Indication: BACK PAIN
     Route: 048
     Dates: start: 20120308
  4. FENTANYL-100 [Suspect]
     Dosage: ONE 12.5 UG/HR EVERY 3 DAYS
     Route: 062
     Dates: start: 20120308, end: 20120308
  5. DESYREL (TRAZADONE HCL) [Concomitant]
     Indication: BACK PAIN
     Dosage: TWO 50 MG TABLETS AT NIGHT
     Route: 048
     Dates: start: 20070101

REACTIONS (2)
  - DRUG INEFFECTIVE [None]
  - MENISCUS LESION [None]
